FAERS Safety Report 19037947 (Version 1)
Quarter: 2021Q1

REPORT INFORMATION
  Report Type: Spontaneous
  Country: US (occurrence: US)
  Receive Date: 20210322
  Receipt Date: 20210322
  Transmission Date: 20210420
  Serious: Yes (Other)
  Sender: FDA-Public Use
  Company Number: US-NORTHSTAR HEALTHCARE HOLDINGS-US-2021NSR000015

PATIENT
  Sex: Female
  Weight: 78.5 kg

DRUGS (5)
  1. PROPRANOLOL HYDROCHLORIDE. [Suspect]
     Active Substance: PROPRANOLOL HYDROCHLORIDE
     Indication: PRODUCT USED FOR UNKNOWN INDICATION
     Dosage: UNK
     Route: 065
     Dates: start: 202005, end: 20200625
  2. NP THYROID [Suspect]
     Active Substance: LEVOTHYROXINE\LIOTHYRONINE
     Indication: HYPOTHYROIDISM
     Dosage: 1 TABLET, QD SAME TIME AS 120 MG TABLET
     Route: 048
     Dates: start: 202003, end: 202005
  3. NP THYROID [Suspect]
     Active Substance: LEVOTHYROXINE\LIOTHYRONINE
     Indication: HYPOTHYROIDISM
     Dosage: 1 TABLET, QD
     Route: 048
     Dates: start: 202003, end: 202005
  4. FLECAINIDE [Suspect]
     Active Substance: FLECAINIDE
     Indication: PRODUCT USED FOR UNKNOWN INDICATION
     Dosage: UNK
     Route: 065
     Dates: start: 202005
  5. ELIQUIS [Suspect]
     Active Substance: APIXABAN
     Indication: PRODUCT USED FOR UNKNOWN INDICATION
     Dosage: UNK
     Route: 065
     Dates: start: 202005

REACTIONS (16)
  - Tri-iodothyronine increased [Unknown]
  - Hypertension [Unknown]
  - Heart rate increased [Unknown]
  - Feeling abnormal [Unknown]
  - Chest pain [Unknown]
  - Blood pressure decreased [Unknown]
  - Temperature intolerance [Unknown]
  - Fatigue [Unknown]
  - Cardiac failure [Not Recovered/Not Resolved]
  - Heart rate decreased [Recovering/Resolving]
  - Fluid retention [Recovered/Resolved]
  - Blood pressure diastolic abnormal [Unknown]
  - Impaired quality of life [Unknown]
  - Atrial fibrillation [Recovered/Resolved]
  - Dyspnoea [Recovered/Resolved]
  - Muscular weakness [Unknown]

NARRATIVE: CASE EVENT DATE: 2020
